FAERS Safety Report 17917974 (Version 2)
Quarter: 2020Q3

REPORT INFORMATION
  Report Type: Spontaneous
  Country: US (occurrence: US)
  Receive Date: 20200619
  Receipt Date: 20200721
  Transmission Date: 20201103
  Serious: No
  Sender: FDA-Public Use
  Company Number: US-VIFOR (INTERNATIONAL) INC.-VIT-2020-06402

PATIENT
  Age: 60 Year
  Sex: Female

DRUGS (4)
  1. VELTASSA [Suspect]
     Active Substance: PATIROMER
     Indication: HYPERKALAEMIA
     Route: 048
     Dates: start: 20161007
  2. ATORVASTATIN [Concomitant]
     Active Substance: ATORVASTATIN
  3. VEMLIDY [Concomitant]
     Active Substance: TENOFOVIR ALAFENAMIDE FUMARATE
  4. MAVYRET [Concomitant]
     Active Substance: GLECAPREVIR\PIBRENTASVIR

REACTIONS (1)
  - Blood count abnormal [Unknown]
